FAERS Safety Report 9252758 (Version 3)
Quarter: 2013Q2

REPORT INFORMATION
  Report Type: Spontaneous
  Country: US (occurrence: US)
  Receive Date: 20130424
  Receipt Date: 20130520
  Transmission Date: 20140414
  Serious: Yes (Other)
  Sender: FDA-Public Use
  Company Number: US-JNJFOC-20130408978

PATIENT
  Sex: Male
  Weight: 45.36 kg

DRUGS (1)
  1. RISPERDAL [Suspect]
     Indication: EXPOSURE VIA FATHER
     Route: 064

REACTIONS (6)
  - Autism [Not Recovered/Not Resolved]
  - Asperger^s disorder [Not Recovered/Not Resolved]
  - Deformity [Unknown]
  - Injury [Unknown]
  - Gynaecomastia [Not Recovered/Not Resolved]
  - Restlessness [Not Recovered/Not Resolved]
